FAERS Safety Report 7941663-3 (Version None)
Quarter: 2011Q4

REPORT INFORMATION
  Report Type: 
  Country: None (occurrence: None)
  Receive Date: 20111128
  Receipt Date: 20111128
  Transmission Date: 20120403
  Serious: Yes (Other)
  Sender: FDA-Public Use
  Company Number: None

PATIENT
  Age: 57 Year
  Sex: Male
  Weight: 74.842 kg

DRUGS (2)
  1. VICTRELIS [Suspect]
     Indication: HEPATITIS C
     Dosage: 800 MG
     Route: 048
  2. WELLBUTRIN [Concomitant]
     Indication: DEPRESSION
     Dosage: 100 MG
     Route: 048

REACTIONS (3)
  - PANIC ATTACK [None]
  - ANXIETY [None]
  - FEELING ABNORMAL [None]
